FAERS Safety Report 25670988 (Version 1)
Quarter: 2025Q3

REPORT INFORMATION
  Report Type: Spontaneous
  Country: CN (occurrence: CN)
  Receive Date: 20250812
  Receipt Date: 20250812
  Transmission Date: 20251021
  Serious: Yes (Death, Other)
  Sender: MERCK SHARP & DOHME LLC
  Company Number: CN-009507513-2317469

PATIENT
  Age: 68 Year
  Sex: Female
  Weight: 56.6 kg

DRUGS (2)
  1. KEYTRUDA [Suspect]
     Active Substance: PEMBROLIZUMAB
     Indication: Lung neoplasm malignant
     Dosage: 100 MG, ONCE
     Route: 042
     Dates: start: 20250708, end: 20250708
  2. SODIUM CHLORIDE [Concomitant]
     Active Substance: SODIUM CHLORIDE
     Indication: Vehicle solution use
     Dosage: 100 ML, ONCE
     Route: 042
     Dates: start: 20250708, end: 20250708

REACTIONS (7)
  - Malignant neoplasm progression [Fatal]
  - Gastrointestinal perforation [Unknown]
  - Underdose [Unknown]
  - Hyperglycaemia [Recovering/Resolving]
  - Respiratory failure [Fatal]
  - Immunodeficiency [Unknown]
  - Pneumonia [Unknown]

NARRATIVE: CASE EVENT DATE: 20250708
